FAERS Safety Report 15738542 (Version 2)
Quarter: 2019Q1

REPORT INFORMATION
  Report Type: Spontaneous
  Country: US (occurrence: US)
  Receive Date: 20181219
  Receipt Date: 20190108
  Transmission Date: 20190417
  Serious: No
  Sender: FDA-Public Use
  Company Number: US-PFIZER INC-2018520835

PATIENT
  Age: 61 Year
  Sex: Female

DRUGS (2)
  1. EUCRISA [Suspect]
     Active Substance: CRISABOROLE
     Dosage: UNK, 1X/DAY (AT BEDTIME)
  2. EUCRISA [Suspect]
     Active Substance: CRISABOROLE
     Indication: DERMATITIS ATOPIC
     Dosage: UNK, 2X/DAY (APPLY TWICE A DAY TO AFFECTED AREAS EXTERNALLY)
     Route: 061
     Dates: start: 201808

REACTIONS (4)
  - Erythema [Unknown]
  - Product use issue [Unknown]
  - Skin burning sensation [Recovered/Resolved]
  - Pain [Unknown]
